FAERS Safety Report 10860677 (Version 3)
Quarter: 2015Q2

REPORT INFORMATION
  Report Type: Spontaneous
  Country: US (occurrence: US)
  Receive Date: 20150224
  Receipt Date: 20150430
  Transmission Date: 20150821
  Serious: Yes (Death, Hospitalization)
  Sender: FDA-Public Use
  Company Number: US-009507513-1502USA009483

PATIENT
  Sex: Male
  Weight: 115.65 kg

DRUGS (8)
  1. COMPAZINE [Concomitant]
     Active Substance: PROCHLORPERAZINE MALEATE
  2. ZANTAC [Concomitant]
     Active Substance: RANITIDINE HYDROCHLORIDE
  3. KEYTRUDA [Suspect]
     Active Substance: PEMBROLIZUMAB
     Indication: METASTATIC MALIGNANT MELANOMA
     Dosage: 200 MG, 1 ST DOSE (FREQUENCY EVERY 3 WEEKS)
     Route: 042
     Dates: start: 20141024, end: 20141024
  4. PREDNISONE. [Concomitant]
     Active Substance: PREDNISONE
     Route: 048
  5. KEYTRUDA [Suspect]
     Active Substance: PEMBROLIZUMAB
     Dosage: 2ND DOSE, 2ND DOSE (FREQUENCY EVERY 3 WEEKS)
     Route: 042
     Dates: start: 20141111, end: 20141111
  6. FUROSEMIDE. [Concomitant]
     Active Substance: FUROSEMIDE
     Route: 048
  7. SPIRONOLACTONE. [Concomitant]
     Active Substance: SPIRONOLACTONE
  8. BACTRIM [Concomitant]
     Active Substance: SULFAMETHOXAZOLE\TRIMETHOPRIM

REACTIONS (3)
  - Malignant neoplasm progression [Fatal]
  - Dyspnoea [Unknown]
  - PO2 decreased [Unknown]

NARRATIVE: CASE EVENT DATE: 2014
